FAERS Safety Report 10599875 (Version 3)
Quarter: 2014Q4

REPORT INFORMATION
  Report Type: Report from Study
  Country: FR (occurrence: FR)
  Receive Date: 20141121
  Receipt Date: 20141223
  Transmission Date: 20150529
  Serious: Yes (Other)
  Sender: FDA-Public Use
  Company Number: FR-009507513-1411FRA008777

PATIENT

DRUGS (8)
  1. PEGINTERFERON ALFA-2B [Suspect]
     Active Substance: PEGINTERFERON ALFA-2B
     Dosage: UNK
     Route: 065
  2. RIBAVIRIN. [Suspect]
     Active Substance: RIBAVIRIN
     Dosage: UNK
     Route: 048
  3. PEGINTERFERON ALFA-2B [Suspect]
     Active Substance: PEGINTERFERON ALFA-2B
     Indication: HEPATITIS C
     Dosage: UNK
     Route: 065
  4. RIBAVIRIN. [Suspect]
     Active Substance: RIBAVIRIN
     Indication: HEPATITIS C
     Dosage: UNK
     Route: 048
  5. TENOFOVIR [Suspect]
     Active Substance: TENOFOVIR
     Indication: HIV INFECTION
  6. ASUNAPREVIR [Suspect]
     Active Substance: ASUNAPREVIR
     Indication: HIV INFECTION
     Dosage: 100 MG, BID
  7. ISENTRESS [Concomitant]
     Active Substance: RALTEGRAVIR POTASSIUM
     Indication: HEPATITIS C
     Dosage: 400 MG, BID
     Route: 048
  8. DACLATASVIR [Suspect]
     Active Substance: DACLATASVIR
     Indication: HIV INFECTION
     Dosage: 60 MG, QD

REACTIONS (1)
  - Neutropenia [Unknown]
